FAERS Safety Report 9485951 (Version 1)
Quarter: 2013Q3

REPORT INFORMATION
  Report Type: Spontaneous
  Country: US (occurrence: None)
  Receive Date: 20130827
  Receipt Date: 20130827
  Transmission Date: 20140515
  Serious: Yes (Life-Threatening, Hospitalization)
  Sender: FDA-Public Use
  Company Number: None

PATIENT
  Age: 77 Year
  Sex: Male

DRUGS (1)
  1. METOPROLOL [Suspect]
     Indication: HYPERTENSION
     Route: 048
     Dates: start: 20110615, end: 20111109

REACTIONS (6)
  - Mental status changes [None]
  - Atrial fibrillation [None]
  - Epistaxis [None]
  - Haematuria [None]
  - Visual impairment [None]
  - Coronary artery disease [None]
